FAERS Safety Report 6703489-8 (Version None)
Quarter: 2010Q2

REPORT INFORMATION
  Report Type: 
  Country: None (occurrence: None)
  Receive Date: 20100430
  Receipt Date: 20100419
  Transmission Date: 20101027
  Serious: Yes (Hospitalization)
  Sender: FDA-Public Use
  Company Number: CA-JNJFOC-20100308178

PATIENT
  Sex: Male
  Weight: 90.4 kg

DRUGS (10)
  1. REMICADE [Suspect]
     Indication: CROHN'S DISEASE
     Dosage: 12 DOSES OF INFLIXIMAB
     Route: 042
  2. REMICADE [Suspect]
     Dosage: 12 DOSES OF INFLIXIMAB
     Route: 042
  3. PREDNISONE [Concomitant]
  4. IMURAN [Concomitant]
  5. METFORMIN [Concomitant]
  6. ACTOS [Concomitant]
  7. LIPIDIL [Concomitant]
  8. FOLIC ACID [Concomitant]
  9. MESASAL [Concomitant]
  10. PALAFER [Concomitant]

REACTIONS (6)
  - ABDOMINAL PAIN [None]
  - BLOOD PRESSURE DECREASED [None]
  - CHILLS [None]
  - DIZZINESS [None]
  - GASTROENTERITIS [None]
  - HYPERHIDROSIS [None]
